FAERS Safety Report 8191813-1 (Version None)
Quarter: 2012Q1

REPORT INFORMATION
  Report Type: 
  Country: None (occurrence: None)
  Receive Date: 20120307
  Receipt Date: 20120305
  Transmission Date: 20120608
  Serious: Yes (Life-Threatening, Disabling, Other)
  Sender: FDA-Public Use
  Company Number: US-BRISTOL-MYERS SQUIBB COMPANY-15482987

PATIENT
  Age: 46 Year
  Sex: Male

DRUGS (5)
  1. MYCOPHENOLATE MOFETIL (CELLCEPT) [Suspect]
     Dates: start: 20020502
  2. PREDNISONE [Suspect]
     Dates: start: 20020502
  3. PEPCID [Concomitant]
     Dates: start: 20060516
  4. BELATACEPT [Suspect]
     Indication: RENAL TRANSPLANT
     Dosage: NO.OF COURSES:112
     Route: 042
     Dates: start: 20020502, end: 20101206
  5. LABETALOL HCL [Concomitant]
     Dates: start: 20020513

REACTIONS (7)
  - PARALYSIS [None]
  - SINUS BRADYCARDIA [None]
  - PNEUMONIA [None]
  - CERVICAL VERTEBRAL FRACTURE [None]
  - QUADRIPLEGIA [None]
  - CARDIAC ARREST [None]
  - RESPIRATORY FAILURE [None]
